FAERS Safety Report 7710363-7 (Version None)
Quarter: 2011Q3

REPORT INFORMATION
  Report Type: 
  Country: None (occurrence: None)
  Receive Date: 20110825
  Receipt Date: 20110819
  Transmission Date: 20111222
  Serious: Yes (Life-Threatening, Hospitalization)
  Sender: FDA-Public Use
  Company Number: US-CELGENEUS-163-C5013-11081726

PATIENT
  Sex: Male
  Weight: 89.529 kg

DRUGS (41)
  1. ARTIFICIAL TEARS [Concomitant]
     Dosage: 1 DROPS
     Route: 047
     Dates: start: 20110709, end: 20110812
  2. ARTIFICIAL TEARS [Concomitant]
     Dosage: 1 PER EYE
     Route: 047
     Dates: start: 20110815
  3. GABAPENTIN [Concomitant]
     Dosage: 300 MILLIGRAM
     Route: 048
     Dates: start: 20110815
  4. ALBUTEROL SULFATE AND IPRATROPIUM BROMIDE [Concomitant]
     Dosage: 180/36 MCG
     Route: 055
     Dates: start: 20110815
  5. ALBUTEROL SULFATE AUTOHALER [Concomitant]
     Dosage: 0.5ML
     Route: 055
     Dates: start: 20110812, end: 20110815
  6. TERAZOSIN HCL [Concomitant]
     Dosage: 5 MILLIGRAM
     Route: 048
     Dates: start: 20061128, end: 20110812
  7. DEXTROSE [Concomitant]
     Indication: BLOOD GLUCOSE
     Dosage: 15 GRAM
     Route: 048
     Dates: start: 20110812, end: 20110815
  8. ASPIRIN [Concomitant]
     Indication: THROMBOSIS PROPHYLAXIS
  9. METOPROLOL [Concomitant]
     Dosage: 25 MILLIGRAM
     Route: 048
     Dates: start: 20110815
  10. ACETAMINOPHEN AND HYDROCODONE BITARTRATE [Concomitant]
     Dosage: 500/5MG
     Route: 048
     Dates: start: 20110815
  11. AMLODIPINE [Concomitant]
     Indication: HYPERTENSION
     Dosage: 5 MILLIGRAM
     Route: 048
     Dates: start: 20100326, end: 20110812
  12. BUPROPION HCL [Concomitant]
     Dosage: 150 MILLIGRAM
     Route: 048
     Dates: start: 20110815
  13. LENALIDOMIDE [Suspect]
     Dosage: 1.25 MILLIGRAM
     Route: 048
     Dates: start: 20110823
  14. CYCLOBENZAPRINE [Concomitant]
     Indication: MUSCLE SPASMS
     Dosage: 5 MILLIGRAM
     Route: 048
     Dates: start: 20101006, end: 20110812
  15. CYCLOBENZAPRINE [Concomitant]
     Dosage: 5 MILLIGRAM
     Route: 048
     Dates: start: 20110815
  16. FLUCONAZOLE [Concomitant]
     Indication: ORAL CANDIDIASIS
     Dosage: 200 MILLIGRAM
     Route: 048
     Dates: start: 20110808, end: 20110812
  17. FOLIC ACID [Concomitant]
     Dosage: 1 MILLIGRAM
     Route: 048
     Dates: start: 20090114, end: 20110805
  18. INSULIN ASPART [Concomitant]
     Indication: BLOOD GLUCOSE
     Dosage: 100 U/ML
     Route: 058
     Dates: start: 20110812, end: 20110815
  19. GABAPENTIN [Concomitant]
     Indication: PAIN
     Dosage: 300 MILLIGRAM
     Route: 048
     Dates: start: 20110207, end: 20110812
  20. IRON SUCROSE [Concomitant]
     Indication: IRON DEFICIENCY
     Dosage: 300 MILLIGRAM
     Route: 041
     Dates: start: 20110812, end: 20110814
  21. DEXTROSE [Concomitant]
     Dosage: 25 MILLILITER
     Route: 041
     Dates: start: 20110812, end: 20110814
  22. LENALIDOMIDE [Suspect]
     Dosage: 2.5 MILLIGRAM
     Route: 048
     Dates: start: 20110729, end: 20110805
  23. ASPIRIN [Concomitant]
     Dosage: 81 MILLIGRAM
     Route: 048
     Dates: start: 20110812, end: 20110815
  24. ALLOPURINOL [Concomitant]
     Indication: PROPHYLAXIS
     Dosage: 300 MILLIGRAM
     Route: 048
     Dates: start: 20110607, end: 20110728
  25. METOPROLOL [Concomitant]
     Indication: HYPERTENSION
     Dosage: 12.5 MILLIGRAM
     Route: 048
     Dates: start: 20100711, end: 20110729
  26. MENTHOL/METHYL SALICYLATE [Concomitant]
     Indication: PAIN
     Dosage: 1 APPLICATION
     Route: 061
     Dates: start: 20101006, end: 20110812
  27. MENTHOL/METHYL SALICYLATE [Concomitant]
     Dosage: 1 APPLICATION
     Route: 061
     Dates: start: 20110815
  28. ALBUTEROL SULFATE AUTOHALER [Concomitant]
     Dosage: 0.083 %
     Route: 055
     Dates: start: 20050126, end: 20110812
  29. ALLOPURINOL [Concomitant]
     Dosage: 100 MILLIGRAM
     Route: 048
     Dates: start: 20110729, end: 20110812
  30. ALBUTEROL SULFATE AND IPRATROPIUM BROMIDE [Concomitant]
     Dosage: 90/18MCG
     Route: 055
     Dates: start: 20061018, end: 20110812
  31. FERROUS GLUCONATE [Concomitant]
     Indication: IRON DEFICIENCY
     Dosage: 325 MILLIGRAM
     Route: 048
     Dates: start: 20110712, end: 20110805
  32. DOCUSATE [Concomitant]
     Indication: CONSTIPATION
     Dosage: 500 MILLIGRAM
     Route: 048
     Dates: start: 20110712, end: 20110805
  33. FENOFIBRATE [Concomitant]
     Dosage: 160 MILLIGRAM
     Route: 048
     Dates: start: 20080918, end: 20110805
  34. SIMAVASTATIN [Concomitant]
     Dosage: 40 MILLIGRAM
     Route: 048
     Dates: start: 20061018, end: 20110805
  35. ALLOPURINOL [Concomitant]
     Dosage: 100 MILLIGRAM
     Route: 048
     Dates: start: 20110815
  36. LISINOPRIL [Concomitant]
     Indication: HYPERTENSION
     Route: 065
     Dates: start: 20070710, end: 20110729
  37. ACETAMINOPHEN AND HYDROCODONE BITARTRATE [Concomitant]
     Indication: PAIN
     Dosage: 500/5MG
     Route: 048
     Dates: start: 20110308, end: 20110812
  38. FAMCICLOVIR [Concomitant]
     Indication: VIRAL INFECTION
     Dosage: 500 MILLIGRAM
     Route: 048
     Dates: start: 20110808, end: 20110812
  39. BUPROPION HCL [Concomitant]
     Indication: DEPRESSION
     Dosage: 150 MILLIGRAM
     Route: 048
     Dates: start: 20061221, end: 20110812
  40. OMEPRAZOLE [Concomitant]
     Dosage: 150 MILLIGRAM
     Route: 048
     Dates: start: 20080731, end: 20110812
  41. HEPARIN SODIUM [Concomitant]
     Dosage: 5000 UNITS
     Route: 058
     Dates: start: 20110812, end: 20110815

REACTIONS (2)
  - PNEUMONIA [None]
  - TUMOUR LYSIS SYNDROME [None]
